FAERS Safety Report 9611732 (Version 1)
Quarter: 2013Q4

REPORT INFORMATION
  Report Type: Spontaneous
  Country: US (occurrence: US)
  Receive Date: 20131010
  Receipt Date: 20131010
  Transmission Date: 20140711
  Serious: No
  Sender: FDA-Public Use
  Company Number: US-PFIZER INC-2013290716

PATIENT
  Age: 49 Year
  Sex: Female
  Weight: 68.93 kg

DRUGS (4)
  1. CELEBREX [Suspect]
     Indication: OSTEOARTHRITIS
     Dosage: 200 MG, DAILY
     Dates: start: 20130918, end: 20130921
  2. PILOCARPINE [Concomitant]
     Indication: SJOGREN^S SYNDROME
     Dosage: 5 MG, 4X/DAY
     Dates: start: 20130917
  3. LEVOTHYROXINE [Concomitant]
     Indication: THYROID DISORDER
     Dosage: 100 UG, DAILY
     Dates: start: 1997
  4. ESTRADIOL [Concomitant]
     Indication: HORMONE REPLACEMENT THERAPY
     Dosage: ^1MG/500^ DAILY

REACTIONS (1)
  - Urticaria [Recovering/Resolving]
